FAERS Safety Report 9065168 (Version 1)
Quarter: 2013Q1

REPORT INFORMATION
  Report Type: Spontaneous
  Country: US (occurrence: US)
  Receive Date: 20130214
  Receipt Date: 20130214
  Transmission Date: 20140127
  Serious: No
  Sender: FDA-Public Use
  Company Number: US-PFIZER INC-2013057336

PATIENT
  Sex: Male
  Weight: 118 kg

DRUGS (1)
  1. ATORVASTATIN CALCIUM [Suspect]
     Indication: BLOOD CHOLESTEROL INCREASED
     Dosage: 20 MG, 1X/DAY
     Dates: start: 2012

REACTIONS (2)
  - Pain in extremity [Recovered/Resolved]
  - Muscular weakness [Recovered/Resolved]
